FAERS Safety Report 12937001 (Version 2)
Quarter: 2021Q4

REPORT INFORMATION
  Report Type: Report from Study
  Country: CA (occurrence: CA)
  Receive Date: 20161114
  Receipt Date: 20211221
  Transmission Date: 20220303
  Serious: Yes (Other)
  Sender: FDA-Public Use
  Company Number: CA-JNJFOC-20161108404

PATIENT
  Age: 17 Year
  Sex: Male
  Weight: 133 kg

DRUGS (3)
  1. REMICADE [Suspect]
     Active Substance: INFLIXIMAB
     Indication: Ankylosing spondylitis
     Dosage: THERAPY DURATION: 120 MINUTES
     Route: 042
     Dates: start: 20160727
  2. REMICADE [Suspect]
     Active Substance: INFLIXIMAB
     Dosage: 10MG/KG
     Route: 042
     Dates: start: 20161018
  3. ESCITALOPRAM [Concomitant]
     Active Substance: ESCITALOPRAM OXALATE
     Indication: Depression
     Route: 048

REACTIONS (3)
  - Panic attack [Not Recovered/Not Resolved]
  - Product use issue [Unknown]
  - Off label use [Unknown]

NARRATIVE: CASE EVENT DATE: 20160727
